FAERS Safety Report 24866955 (Version 1)
Quarter: 2025Q1

REPORT INFORMATION
  Report Type: Spontaneous
  Country: SE (occurrence: SE)
  Receive Date: 20250121
  Receipt Date: 20250121
  Transmission Date: 20250409
  Serious: Yes (Other)
  Sender: BOEHRINGER INGELHEIM
  Company Number: None

PATIENT
  Age: 64 Year
  Sex: Female

DRUGS (1)
  1. PRAMIPEXOLE [Suspect]
     Active Substance: PRAMIPEXOLE
     Indication: Restless legs syndrome
     Dates: start: 20241201

REACTIONS (6)
  - Dizziness [Not Recovered/Not Resolved]
  - Hiccups [Not Recovered/Not Resolved]
  - Visual impairment [Not Recovered/Not Resolved]
  - Tooth injury [Not Recovered/Not Resolved]
  - Syncope [Not Recovered/Not Resolved]
  - Pulpless tooth [Not Recovered/Not Resolved]

NARRATIVE: CASE EVENT DATE: 20241201
